FAERS Safety Report 25509385 (Version 1)
Quarter: 2025Q3

REPORT INFORMATION
  Report Type: Spontaneous
  Country: US (occurrence: None)
  Receive Date: 20250702
  Receipt Date: 20250702
  Transmission Date: 20251021
  Serious: Yes (Hospitalization)
  Sender: FDA-CTU
  Company Number: None

PATIENT
  Age: 74 Year

DRUGS (10)
  1. TACROLIMUS [Suspect]
     Active Substance: TACROLIMUS
     Indication: Renal transplant
     Dosage: 1 MG BID ORAL
     Route: 048
     Dates: start: 20240725
  2. MYCOPHENOLIC ACID [Suspect]
     Active Substance: MYCOPHENOLIC ACID
     Indication: Renal transplant
     Dosage: 180 MG BID ORAL
     Route: 048
     Dates: start: 20240725
  3. AMIODARONE [Concomitant]
     Active Substance: AMIODARONE
     Dates: start: 20240820
  4. COLCHICINE [Concomitant]
     Active Substance: COLCHICINE
  5. ELIQUIS 2.5 MG TABLETS [Concomitant]
     Dates: start: 20240814
  6. NIFEDIPINE 10MG CAPSULES [Concomitant]
     Dates: start: 20250205
  7. PRAVASTATIN SODIUM [Concomitant]
     Active Substance: PRAVASTATIN SODIUM
     Dates: start: 20250313
  8. PREDNISONE 10MG TABS PACK 21S [Concomitant]
  9. CINACALCET [Concomitant]
     Active Substance: CINACALCET
     Dates: start: 20240814
  10. PRIMIDONE [Concomitant]
     Active Substance: PRIMIDONE
     Dates: start: 20240820

REACTIONS (2)
  - Fistula repair [None]
  - Laboratory test abnormal [None]

NARRATIVE: CASE EVENT DATE: 20250609
